FAERS Safety Report 21376567 (Version 1)
Quarter: 2022Q3

REPORT INFORMATION
  Report Type: Spontaneous
  Country: US (occurrence: None)
  Receive Date: 20220924
  Receipt Date: 20220924
  Transmission Date: 20221027
  Serious: Yes (Death, Hospitalization)
  Sender: FDA-Public Use
  Company Number: None

PATIENT
  Age: 67 Year
  Sex: Male
  Weight: 64.6 kg

DRUGS (1)
  1. TAXOTERE [Suspect]
     Active Substance: DOCETAXEL
     Dates: end: 20220901

REACTIONS (23)
  - Dizziness postural [None]
  - Hypophagia [None]
  - Fatigue [None]
  - Decreased appetite [None]
  - Nausea [None]
  - Constipation [None]
  - Tachycardia [None]
  - Neutropenia [None]
  - Hypokalaemia [None]
  - Mental status changes [None]
  - Unresponsive to stimuli [None]
  - Arteriosclerosis [None]
  - Muscle spasms [None]
  - Vasculitis [None]
  - Confusional state [None]
  - Embolic stroke [None]
  - Dilatation ventricular [None]
  - Hydrocephalus [None]
  - Meningitis [None]
  - Encephalitis [None]
  - CNS ventriculitis [None]
  - Seizure [None]
  - Metastatic neoplasm [None]

NARRATIVE: CASE EVENT DATE: 20220908
